FAERS Safety Report 19188638 (Version 1)
Quarter: 2021Q2

REPORT INFORMATION
  Report Type: Spontaneous
  Country: US (occurrence: US)
  Receive Date: 20210427
  Receipt Date: 20210427
  Transmission Date: 20210717
  Serious: No
  Sender: FDA-Public Use
  Company Number: US-PRINSTON PHARMACEUTICAL INC.-2019PRN00904

PATIENT

DRUGS (4)
  1. CLONAZEPAM. [Suspect]
     Active Substance: CLONAZEPAM
     Dosage: 1 MG, 1X/DAY BEFORE BED
     Route: 048
     Dates: start: 2019
  2. CLONAZEPAM. [Suspect]
     Active Substance: CLONAZEPAM
     Dosage: 0.5 MG, 1X/DAY IN AM
     Route: 048
     Dates: start: 2019
  3. ADDERALL [Suspect]
     Active Substance: AMPHETAMINE ASPARTATE\AMPHETAMINE SULFATE\DEXTROAMPHETAMINE SACCHARATE\DEXTROAMPHETAMINE SULFATE
     Dosage: 30 MG, 1X/DAY AT 8 AM
  4. CLONAZEPAM. [Suspect]
     Active Substance: CLONAZEPAM
     Dosage: 0.5 MG, 1X/DAY IN AFTERNOON
     Route: 048
     Dates: start: 2019

REACTIONS (2)
  - Drug metabolising enzyme increased [Unknown]
  - Drug screen negative [Unknown]

NARRATIVE: CASE EVENT DATE: 2019
